FAERS Safety Report 4997279-4 (Version None)
Quarter: 2006Q2

REPORT INFORMATION
  Report Type: 
  Country: None (occurrence: None)
  Receive Date: 20060505
  Receipt Date: 20060425
  Transmission Date: 20061013
  Serious: Yes (Other)
  Sender: FDA-Public Use
  Company Number: 2006054729

PATIENT
  Sex: Female

DRUGS (1)
  1. UNISOM [Suspect]
     Dosage: 8 TABLETS ONCE, ORAL
     Route: 048
     Dates: start: 20060425, end: 20060425

REACTIONS (5)
  - ABASIA [None]
  - COORDINATION ABNORMAL [None]
  - INCORRECT DOSE ADMINISTERED [None]
  - SCREAMING [None]
  - TREMOR [None]
